FAERS Safety Report 6456639-5 (Version None)
Quarter: 2009Q4

REPORT INFORMATION
  Report Type: 
  Country: None (occurrence: None)
  Receive Date: 20091120
  Receipt Date: 20091106
  Transmission Date: 20100525
  Serious: Yes (Other)
  Sender: FDA-Public Use
  Company Number: MC200900392

PATIENT
  Age: 47 Year
  Sex: Male

DRUGS (3)
  1. CLEVIPREX [Suspect]
     Indication: PROCEDURAL HYPERTENSION
     Dosage: TITRATED FROM 1-2MG/HR UP TO 32MG/HR, INTRAVENOUS
     Route: 042
     Dates: start: 20091024, end: 20091024
  2. PARALYZING AGENT [Suspect]
     Dates: start: 20091024
  3. CARDENE [Suspect]
     Dates: start: 20091024

REACTIONS (4)
  - CARDIAC SEPTAL DEFECT RESIDUAL SHUNT [None]
  - HYPOTENSION [None]
  - OXYGEN SATURATION DECREASED [None]
  - POST PROCEDURAL COMPLICATION [None]
